FAERS Safety Report 9152405 (Version 3)
Quarter: 2013Q3

REPORT INFORMATION
  Report Type: Spontaneous
  Country: US (occurrence: US)
  Receive Date: 20130308
  Receipt Date: 20130821
  Transmission Date: 20140515
  Serious: Yes (Death, Hospitalization)
  Sender: FDA-Public Use
  Company Number: US-B.I. PHARMACEUTICALS,INC./RIDGEFIELD-2013-BI-06013BP

PATIENT
  Age: 84 Year
  Sex: Male
  Weight: 72.57 kg

DRUGS (9)
  1. PRADAXA [Suspect]
     Dosage: 75 MG
     Route: 048
     Dates: start: 20110929
  2. PLAVIX [Suspect]
     Dosage: 75 MG
     Route: 048
     Dates: start: 20111003
  3. ASPIRIN DELAYED RELEASE [Concomitant]
     Dosage: 81 MG
     Route: 048
     Dates: start: 20111003
  4. LASIX [Concomitant]
     Dosage: 20 MG
     Route: 048
     Dates: start: 20111003
  5. LIPITOR [Concomitant]
     Dosage: 20 MG
     Route: 048
     Dates: start: 20111003
  6. LISINOPRIL [Concomitant]
     Dosage: 20 MG
     Route: 048
     Dates: start: 20111003
  7. LOPRESSOR [Concomitant]
     Dosage: 50 MG
     Route: 048
     Dates: start: 20111003
  8. AMLODIPINE [Concomitant]
     Dosage: 10 MG
     Route: 048
     Dates: start: 20111003
  9. IMDUR 24 HR [Concomitant]
     Dosage: 60 MG
     Route: 048
     Dates: start: 20111003

REACTIONS (5)
  - Upper gastrointestinal haemorrhage [Fatal]
  - Cardio-respiratory arrest [Fatal]
  - Coagulopathy [Unknown]
  - Thrombocytopenia [Unknown]
  - Platelet disorder [Unknown]
